FAERS Safety Report 6768341-0 (Version None)
Quarter: 2010Q2

REPORT INFORMATION
  Report Type: 
  Country: None (occurrence: None)
  Receive Date: 20100614
  Receipt Date: 20100610
  Transmission Date: 20101027
  Serious: Yes (Life-Threatening, Hospitalization)
  Sender: FDA-Public Use
  Company Number: GB-CEPHALON-2010002470

PATIENT
  Sex: Male

DRUGS (13)
  1. TRISENOX [Suspect]
     Indication: ACUTE MYELOID LEUKAEMIA
     Route: 042
     Dates: start: 20100415
  2. ALL-TRANS RETINOIC ACID [Suspect]
     Indication: ACUTE MYELOID LEUKAEMIA
     Dates: start: 20100413
  3. IMIPENEM [Concomitant]
     Dates: start: 20100421, end: 20100426
  4. DALTEPARIN SODIUM [Concomitant]
     Dates: start: 20100417
  5. RANITIDINE [Concomitant]
     Dates: start: 20100423, end: 20100427
  6. ACYCLOVIR [Concomitant]
     Dates: start: 20100423, end: 20100505
  7. DOXAZOSIN MESYLATE [Concomitant]
     Dates: start: 20100412, end: 20100514
  8. ASPIRIN [Concomitant]
     Dates: start: 20100412, end: 20100425
  9. TAZOCIN [Concomitant]
     Dates: start: 20100420, end: 20100422
  10. FLUCONAZOLE [Concomitant]
     Dates: start: 20100420, end: 20100503
  11. BEDOMETASONE [Concomitant]
     Dates: start: 20100415, end: 20100423
  12. SANDO-K [Concomitant]
     Dates: start: 20100416, end: 20100422
  13. VALSARTAN [Concomitant]
     Dates: start: 20100416, end: 20100423

REACTIONS (3)
  - CEREBRAL INFARCTION [None]
  - CEREBRAL THROMBOSIS [None]
  - OBSTRUCTIVE AIRWAYS DISORDER [None]
